FAERS Safety Report 25831912 (Version 1)
Quarter: 2025Q3

REPORT INFORMATION
  Report Type: Spontaneous
  Country: GB (occurrence: GB)
  Receive Date: 20250922
  Receipt Date: 20250922
  Transmission Date: 20251021
  Serious: Yes (Disabling)
  Sender: DR REDDYS
  Company Number: None

PATIENT

DRUGS (3)
  1. CLARITHROMYCIN [Suspect]
     Active Substance: CLARITHROMYCIN
     Indication: Product used for unknown indication
  2. WOCKHARDT UK LEVOTHYROXINE [Concomitant]
     Indication: Hypothyroidism
     Dates: start: 20210408
  3. LANSOPRAZOLE [Concomitant]
     Active Substance: LANSOPRAZOLE
     Indication: Antibiotic therapy
     Dates: start: 20250908

REACTIONS (4)
  - Insomnia [Not Recovered/Not Resolved]
  - Dysgeusia [Not Recovered/Not Resolved]
  - Abdominal discomfort [Recovering/Resolving]
  - Flatulence [Recovering/Resolving]

NARRATIVE: CASE EVENT DATE: 20250908
